FAERS Safety Report 8842782 (Version 1)
Quarter: 2012Q4

REPORT INFORMATION
  Report Type: 
  Country: US (occurrence: US)
  Receive Date: 20121016
  Receipt Date: 20121016
  Transmission Date: 20130627
  Serious: Yes (Other)
  Sender: FDA-Public Use
  Company Number: US-PFIZER INC-2012248370

PATIENT
  Age: 31 Year
  Sex: Female
  Weight: 95.24 kg

DRUGS (10)
  1. FIBERCON [Suspect]
     Indication: CONSTIPATION
     Dosage: 2 caplets, 1x/day
     Route: 048
     Dates: start: 20121004, end: 20121006
  2. XANAX [Concomitant]
     Indication: POST-TRAUMATIC STRESS DISORDER
     Dosage: UNK
  3. SEROQUEL [Concomitant]
     Dosage: UNK
  4. SINGULAIR [Concomitant]
     Dosage: UNK
  5. FLEXERIL [Concomitant]
     Dosage: UNK
  6. ZYRTEC [Concomitant]
     Dosage: UNK
  7. TYLENOL W/CODEINE NO. 3 [Concomitant]
     Dosage: UNK
  8. NITROFUR MAC [Concomitant]
     Dosage: UNK
  9. VITAMIN D [Concomitant]
     Indication: VITAMIN D DECREASED
     Dosage: UNK
  10. MULTIVITAMINS [Concomitant]
     Dosage: UNK

REACTIONS (5)
  - Drug hypersensitivity [Unknown]
  - Rash erythematous [Recovered/Resolved]
  - Pruritus generalised [Recovered/Resolved]
  - Burning sensation [Recovered/Resolved]
  - Drug ineffective [Unknown]
